FAERS Safety Report 13597466 (Version 1)
Quarter: 2017Q2

REPORT INFORMATION
  Report Type: Spontaneous
  Country: US (occurrence: US)
  Receive Date: 20170531
  Receipt Date: 20170531
  Transmission Date: 20170830
  Serious: No
  Sender: FDA-Public Use
  Company Number: US-JNJFOC-20170514969

PATIENT
  Age: 70 Year
  Sex: Female
  Weight: 54 kg

DRUGS (5)
  1. HEPARIN [Concomitant]
     Active Substance: HEPARIN SODIUM
  2. ALLOPURINOL. [Concomitant]
     Active Substance: ALLOPURINOL
     Route: 048
  3. IMBRUVICA [Suspect]
     Active Substance: IBRUTINIB
     Indication: CHRONIC LYMPHOCYTIC LEUKAEMIA
     Route: 048
  4. IMBRUVICA [Suspect]
     Active Substance: IBRUTINIB
     Indication: CHRONIC LYMPHOCYTIC LEUKAEMIA
     Route: 048
     Dates: start: 2014, end: 201704
  5. MINIVELLE [Concomitant]
     Active Substance: ESTRADIOL
     Route: 061

REACTIONS (8)
  - Abdominal distension [Not Recovered/Not Resolved]
  - Muscle spasms [Unknown]
  - Lymphadenopathy [Not Recovered/Not Resolved]
  - Cough [Recovered/Resolved]
  - Drug dose omission [Unknown]
  - Pneumonia pseudomonal [Unknown]
  - Decreased appetite [Not Recovered/Not Resolved]
  - Pyrexia [Not Recovered/Not Resolved]

NARRATIVE: CASE EVENT DATE: 2016
